FAERS Safety Report 4768907-3 (Version None)
Quarter: 2005Q3

REPORT INFORMATION
  Report Type: 
  Country: None (occurrence: None)
  Receive Date: 20050914
  Receipt Date: 20050420
  Transmission Date: 20060218
  Serious: Yes (Other)
  Sender: FDA-Public Use
  Company Number: GBWYE355320JAN05

PATIENT
  Sex: Female

DRUGS (11)
  1. ENBREL [Suspect]
     Indication: RHEUMATOID ARTHRITIS
     Route: 058
     Dates: start: 20020531, end: 20050401
  2. PLAQUENIL [Concomitant]
     Indication: RHEUMATOID ARTHRITIS
     Route: 048
  3. NIMESULIDE [Concomitant]
     Indication: RHEUMATOID ARTHRITIS
  4. METHOTREXATE [Concomitant]
     Indication: RHEUMATOID ARTHRITIS
     Route: 048
  5. IDEOS [Concomitant]
     Indication: OSTEOPOROSIS
     Route: 048
  6. FOSAMAX [Concomitant]
     Route: 048
  7. FOLIC ACID [Concomitant]
     Indication: RHEUMATOID ARTHRITIS
     Route: 048
  8. DISTALGESIC [Concomitant]
     Indication: RHEUMATOID ARTHRITIS
     Dosage: 2 TABLETS TO BE TAKEN WHEN REQUIRED
     Route: 048
  9. ZOTON [Concomitant]
     Indication: PROPHYLAXIS
     Route: 048
  10. STILNOCT [Concomitant]
     Indication: INSOMNIA
     Dosage: 10MG, FREQUENCY UNKNOWN
     Route: 048
  11. SALAZOPYRIN [Concomitant]

REACTIONS (7)
  - ALOPECIA [None]
  - DRY SKIN [None]
  - ERYTHEMA [None]
  - FOLLICULITIS [None]
  - PRURITUS [None]
  - RASH PAPULAR [None]
  - SYSTEMIC LUPUS ERYTHEMATOSUS [None]
